FAERS Safety Report 23500794 (Version 1)
Quarter: 2024Q1

REPORT INFORMATION
  Report Type: Spontaneous
  Country: US (occurrence: US)
  Receive Date: 20240208
  Receipt Date: 20240208
  Transmission Date: 20240410
  Serious: No
  Sender: FDA-Public Use
  Company Number: US-KARYOPHARM-2023KPT002038

PATIENT

DRUGS (16)
  1. XPOVIO [Suspect]
     Active Substance: SELINEXOR
     Indication: Plasma cell myeloma
     Dosage: 100 MG, WEEKLY
     Route: 048
     Dates: start: 20230606, end: 20231030
  2. ONDANSETRON [Concomitant]
     Active Substance: ONDANSETRON
  3. PROCHLORPERAZINE [Concomitant]
     Active Substance: PROCHLORPERAZINE
  4. TADALAFIL [Concomitant]
     Active Substance: TADALAFIL
  5. VICTOZA [Concomitant]
     Active Substance: LIRAGLUTIDE
  6. ACYCLOVIR SODIUM [Concomitant]
     Active Substance: ACYCLOVIR SODIUM
  7. ALLOPURINOL [Concomitant]
     Active Substance: ALLOPURINOL
  8. HYDROCODONE BITARTRATE AND ACETAMINOPHEN [Concomitant]
     Active Substance: ACETAMINOPHEN\HYDROCODONE BITARTRATE
  9. CALCITRIOL [Concomitant]
     Active Substance: CALCITRIOL
  10. DARZALEX [Concomitant]
     Active Substance: DARATUMUMAB
  11. DEXAMETHASONE [Concomitant]
     Active Substance: DEXAMETHASONE
  12. FINASTERIDE [Concomitant]
     Active Substance: FINASTERIDE
  13. GLYBURIDE;METFORMIN HYDROCHLORIDE [Concomitant]
  14. TAMSULOSIN [Concomitant]
     Active Substance: TAMSULOSIN
  15. LEVEMIR [Concomitant]
     Active Substance: INSULIN DETEMIR
  16. NOVOLOG [Concomitant]
     Active Substance: INSULIN ASPART

REACTIONS (2)
  - Nausea [Unknown]
  - Vomiting [Recovering/Resolving]

NARRATIVE: CASE EVENT DATE: 20231001
